FAERS Safety Report 18078036 (Version 1)
Quarter: 2020Q3

REPORT INFORMATION
  Report Type: Spontaneous
  Country: US (occurrence: US)
  Receive Date: 20200727
  Receipt Date: 20200727
  Transmission Date: 20201103
  Serious: No
  Sender: FDA-Public Use
  Company Number: US-SEATTLE GENETICS-2020SGN02490

PATIENT
  Sex: Female

DRUGS (1)
  1. TUKYSA [Suspect]
     Active Substance: TUCATINIB
     Indication: BREAST CANCER

REACTIONS (8)
  - Diarrhoea [Recovering/Resolving]
  - Fatigue [Unknown]
  - Papule [Unknown]
  - Pain [Unknown]
  - Headache [Unknown]
  - Erythema [Unknown]
  - Hypoaesthesia [Unknown]
  - Nausea [Unknown]
